FAERS Safety Report 18079480 (Version 1)
Quarter: 2020Q3

REPORT INFORMATION
  Report Type: Spontaneous
  Country: US (occurrence: US)
  Receive Date: 20200727
  Receipt Date: 20200727
  Transmission Date: 20201103
  Serious: Yes (Death)
  Sender: FDA-Public Use
  Company Number: None

PATIENT
  Age: 74 Year
  Sex: Male
  Weight: 98.5 kg

DRUGS (16)
  1. ZOLPIDEM [Concomitant]
     Active Substance: ZOLPIDEM TARTRATE
  2. FUROSEMIDE. [Concomitant]
     Active Substance: FUROSEMIDE
  3. MUPIROCIN. [Concomitant]
     Active Substance: MUPIROCIN
  4. BUPROPION. [Concomitant]
     Active Substance: BUPROPION
  5. TAMSULOSIN [Concomitant]
     Active Substance: TAMSULOSIN
  6. REMDESIVIR SOLUTION 100 MG VIAL [Suspect]
     Active Substance: REMDESIVIR
     Indication: COVID-19 PNEUMONIA
     Dosage: FREQUENCY: ONCE
     Route: 042
     Dates: start: 20200713, end: 20200713
  7. DIPHENHYDRAMINE. [Concomitant]
     Active Substance: DIPHENHYDRAMINE
  8. CITALOPRAM [Concomitant]
     Active Substance: CITALOPRAM HYDROBROMIDE
  9. INSULIN, REGULAR [Concomitant]
     Active Substance: INSULIN NOS
  10. MELATONIN [Concomitant]
     Active Substance: MELATONIN
  11. CHLORHEXIDINE [Concomitant]
     Active Substance: CHLORHEXIDINE
  12. DEXAMETHASONE. [Concomitant]
     Active Substance: DEXAMETHASONE
  13. ENOXAPARIN [Concomitant]
     Active Substance: ENOXAPARIN
  14. NIFEDIPINE. [Concomitant]
     Active Substance: NIFEDIPINE
  15. QUETIAPINE. [Concomitant]
     Active Substance: QUETIAPINE
  16. REMDESIVIR SOLUTION 100 MG VIAL [Suspect]
     Active Substance: REMDESIVIR
     Indication: COVID-19 PNEUMONIA
     Route: 042
     Dates: start: 20200714, end: 20200717

REACTIONS (1)
  - Bradycardia [None]

NARRATIVE: CASE EVENT DATE: 20200724
